FAERS Safety Report 4855601-3 (Version None)
Quarter: 2005Q4

REPORT INFORMATION
  Report Type: 
  Country: None (occurrence: None)
  Receive Date: 20051216
  Receipt Date: 20051026
  Transmission Date: 20060501
  Serious: Yes (Other)
  Sender: FDA-Public Use
  Company Number: PHBS2005JP16003

PATIENT
  Age: 72 Year
  Sex: Female
  Weight: 32 kg

DRUGS (9)
  1. DIOVAN [Suspect]
     Indication: HYPERTENSION
     Dosage: 40 MG, QD
     Route: 048
  2. PROPOFOL [Suspect]
     Indication: ANAESTHESIA
     Dosage: 50 MG/DAY
  3. FENTANYL [Suspect]
     Indication: ANAESTHESIA
     Dosage: 50 UG, UNK
     Route: 042
     Dates: start: 20050422, end: 20050422
  4. NITROUS OXIDE W/ OXYGEN [Suspect]
     Indication: ANAESTHESIA
     Dosage: 50 %/DAY
     Dates: start: 20050422, end: 20050422
  5. SEVOFLURANE [Suspect]
     Indication: ANAESTHESIA
     Dosage: 1%/DAY
     Dates: start: 20050422, end: 20050422
  6. ATRIAL NATRIURETIC PEPTIDE [Concomitant]
  7. HANP [Suspect]
     Indication: RENAL FAILURE
     Dosage: 0.02 UG/KG/DAY
     Route: 042
     Dates: start: 20050422, end: 20050422
  8. DIART [Concomitant]
     Indication: OEDEMA
     Dosage: 60 MG, UNK
     Route: 048
  9. MUSCULAX [Concomitant]
     Indication: HYPOTONIA
     Dosage: 4 MG, UNK
     Route: 042
     Dates: start: 20050422, end: 20050422

REACTIONS (7)
  - ANAEMIA [None]
  - DRUG EFFECT DECREASED [None]
  - DRUG INTERACTION [None]
  - HEART RATE DECREASED [None]
  - HYPOTENSION [None]
  - RENAL IMPAIRMENT [None]
  - TACHYCARDIA [None]
